FAERS Safety Report 8200780-3 (Version None)
Quarter: 2012Q1

REPORT INFORMATION
  Report Type: 
  Country: None (occurrence: None)
  Receive Date: 20120308
  Receipt Date: 20120228
  Transmission Date: 20120608
  Serious: Yes (Life-Threatening, Hospitalization)
  Sender: FDA-Public Use
  Company Number: 216919

PATIENT
  Age: 85 Year
  Sex: Female
  Weight: 46 kg

DRUGS (7)
  1. LOPERAMINE (LOPERAMINE) [Concomitant]
  2. INNOHEP [Suspect]
     Indication: THROMBOSIS
     Dosage: 0.5 ML (1 IN 1 D),SUBCUTANEOUS
     Route: 058
     Dates: start: 20110101, end: 20120213
  3. OXYCONTIN [Concomitant]
  4. VITAMIN B12 [Concomitant]
  5. POTASSIUM CHLORIDE [Concomitant]
  6. OXYNORMO (OXYCODONE HYDROCHLORIDE) [Concomitant]
  7. RABEPRAZOLE SODIUM [Concomitant]

REACTIONS (17)
  - RECTAL HAEMORRHAGE [None]
  - PSYCHOMOTOR SKILLS IMPAIRED [None]
  - HAEMORRHAGE [None]
  - DEVICE RELATED SEPSIS [None]
  - PNEUMOTHORAX [None]
  - SKIN INJURY [None]
  - PROTEUS TEST POSITIVE [None]
  - VAGINAL HAEMORRHAGE [None]
  - HYPOALBUMINAEMIA [None]
  - CYANOSIS [None]
  - CIRCULATORY COLLAPSE [None]
  - ESCHERICHIA TEST POSITIVE [None]
  - ANAEMIA [None]
  - METRORRHAGIA [None]
  - HYPOTHERMIA [None]
  - CACHEXIA [None]
  - HAEMATOMA [None]
